FAERS Safety Report 5693015-7 (Version None)
Quarter: 2008Q2

REPORT INFORMATION
  Report Type: 
  Country: None (occurrence: None)
  Receive Date: 20080402
  Receipt Date: 20080402
  Transmission Date: 20081010
  Serious: Yes (Other)
  Sender: FDA-Public Use
  Company Number: None

PATIENT
  Sex: Male
  Weight: 79.54 kg

DRUGS (2)
  1. ACYCLOVIR [Suspect]
     Dosage: IV
     Route: 042
  2. FLUCONAZOLE [Suspect]
     Dosage: IV
     Route: 042

REACTIONS (3)
  - INJECTION SITE ERYTHEMA [None]
  - INJECTION SITE PRURITUS [None]
  - INJECTION SITE SWELLING [None]
